FAERS Safety Report 13167566 (Version 2)
Quarter: 2017Q1

REPORT INFORMATION
  Report Type: Spontaneous
  Country: US (occurrence: US)
  Receive Date: 20170131
  Receipt Date: 20170301
  Transmission Date: 20170428
  Serious: Yes (Hospitalization)
  Sender: FDA-Public Use
  Company Number: US-PFIZER INC-2017040598

PATIENT
  Age: 80 Year
  Sex: Male
  Weight: 117.93 kg

DRUGS (1)
  1. VIAGRA [Suspect]
     Active Substance: SILDENAFIL CITRATE
     Indication: DYSURIA
     Dosage: 20 MG, 1X/DAY

REACTIONS (2)
  - Product use issue [Not Recovered/Not Resolved]
  - Prostate cancer [Not Recovered/Not Resolved]
